FAERS Safety Report 5604289-2 (Version None)
Quarter: 2008Q1

REPORT INFORMATION
  Report Type: 
  Country: None (occurrence: None)
  Receive Date: 20080128
  Receipt Date: 20080115
  Transmission Date: 20080703
  Serious: Yes (Hospitalization)
  Sender: FDA-Public Use
  Company Number: US-ELI_LILLY_AND_COMPANY-US200801002911

PATIENT
  Sex: Male

DRUGS (6)
  1. BYETTA [Suspect]
     Indication: GLUCOSE TOLERANCE IMPAIRED
     Dosage: 5 UG, 2/D
     Route: 058
     Dates: start: 20070801, end: 20070901
  2. BYETTA [Suspect]
     Dosage: 10 UG, 2/D
     Route: 058
     Dates: start: 20070901
  3. METFORMIN HCL [Concomitant]
     Dosage: 100 MG, EACH EVENING
     Route: 048
     Dates: end: 20080101
  4. METFORMIN HCL [Concomitant]
     Dosage: 100 MG, EACH EVENING
     Route: 058
     Dates: start: 20080101
  5. AVANDAMET [Concomitant]
     Dosage: 1000 MG, DAILY (1/D)
     Route: 048
  6. INSULIN [Concomitant]
     Dosage: UNK, UNKNOWN
     Dates: start: 20080101

REACTIONS (5)
  - BLOOD GLUCOSE INCREASED [None]
  - DECREASED APPETITE [None]
  - EARLY SATIETY [None]
  - FATIGUE [None]
  - PNEUMONIA [None]
